FAERS Safety Report 4448586-5 (Version None)
Quarter: 2004Q3

REPORT INFORMATION
  Report Type: 
  Country: None (occurrence: None)
  Receive Date: 20040730
  Receipt Date: 20040106
  Transmission Date: 20050211
  Serious: Yes (Other)
  Sender: FDA-Public Use
  Company Number: 2004-01-0393

PATIENT
  Age: 63 Year
  Sex: Female
  Weight: 73.0291 kg

DRUGS (5)
  1. INTRON A [Suspect]
     Indication: COLON CANCER
     Dosage: 3MU TIW SUBCUTANEOUS
     Route: 058
     Dates: start: 20031201, end: 20031229
  2. INTRON A [Suspect]
     Indication: METASTATIC NEOPLASM
     Dosage: 3MU TIW SUBCUTANEOUS
     Route: 058
     Dates: start: 20031201, end: 20031229
  3. GLUCOVANCE (GLYBURIDE/METFORMIN) [Concomitant]
  4. LIPITOR [Concomitant]
  5. CLARITIN [Concomitant]

REACTIONS (7)
  - ANAEMIA [None]
  - AUTOIMMUNE DISORDER [None]
  - DIVERTICULUM [None]
  - GASTRITIS [None]
  - GASTROINTESTINAL HAEMORRHAGE [None]
  - INTESTINAL POLYP [None]
  - MASS [None]
